FAERS Safety Report 4946945-5 (Version None)
Quarter: 2006Q1

REPORT INFORMATION
  Report Type: 
  Country: None (occurrence: None)
  Receive Date: 20060317
  Receipt Date: 20051223
  Transmission Date: 20060701
  Serious: Yes (Hospitalization)
  Sender: FDA-Public Use
  Company Number: US-ROCHE-430104

PATIENT
  Age: 39 Year
  Sex: Female

DRUGS (16)
  1. PEGASYS [Suspect]
     Indication: HEPATITIS C
     Route: 058
     Dates: start: 20040515, end: 20040811
  2. RIBAVIRIN [Suspect]
     Indication: HEPATITIS C
     Route: 048
     Dates: start: 20040515, end: 20040811
  3. WELLBUTRIN XL [Concomitant]
     Indication: DEPRESSION
     Route: 048
  4. LEXAPRO [Concomitant]
     Indication: DEPRESSION
     Dosage: 10 MG LATER SWITCHED TO 20 MG DAILY.
     Route: 048
  5. BENTYL [Concomitant]
     Indication: IRRITABLE BOWEL SYNDROME
     Route: 048
  6. MOTRIN [Concomitant]
  7. ACIPHEX [Concomitant]
     Indication: PROPHYLAXIS
  8. DIAMOX [Concomitant]
     Dosage: FROM 1000 TO 1500 MG.
     Dates: start: 20040615
  9. DURAGESIC-100 [Concomitant]
     Indication: HEADACHE
     Dates: start: 20040615
  10. VICOPROFEN [Concomitant]
     Dosage: 2 DOSE FORMS AT BEDTIME TO PRN TO 4 DOSE FORMS PER DAY . TAPERING DOSE REPORTED AS PER 17 JAN 2005 +
     Route: 048
     Dates: start: 20040615
  11. LASIX [Concomitant]
  12. COLACE [Concomitant]
  13. POTASSIUM [Concomitant]
  14. UNSPECIFIED MEDICATION [Concomitant]
     Indication: DEPRESSION
     Dosage: REPORTED AS ANTI-DEPRESSANTS.
  15. DOXYCYCLINE [Concomitant]
     Dosage: FOR SEVERAL DAYS.
     Dates: start: 20040715, end: 20040715
  16. ANTIBIOTICS NOS [Concomitant]

REACTIONS (15)
  - ABDOMINAL DISTENSION [None]
  - ARTHRALGIA [None]
  - BENIGN INTRACRANIAL HYPERTENSION [None]
  - CHOLELITHIASIS [None]
  - DIZZINESS [None]
  - FALL [None]
  - FATIGUE [None]
  - INFLUENZA LIKE ILLNESS [None]
  - JOINT SWELLING [None]
  - MENINGITIS VIRAL [None]
  - MYALGIA [None]
  - OEDEMA PERIPHERAL [None]
  - PAPILLOEDEMA [None]
  - PHOTOPHOBIA [None]
  - WHITE BLOOD CELL COUNT DECREASED [None]
